APPROVED DRUG PRODUCT: DESMOPRESSIN ACETATE
Active Ingredient: DESMOPRESSIN ACETATE
Strength: 0.004MG/ML
Dosage Form/Route: INJECTABLE;INJECTION
Application: A210218 | Product #001 | TE Code: AP
Applicant: UBI PHARMA INC
Approved: Feb 14, 2020 | RLD: No | RS: No | Type: RX